FAERS Safety Report 6897696-1 (Version None)
Quarter: 2010Q3

REPORT INFORMATION
  Report Type: 
  Country: None (occurrence: None)
  Receive Date: 20100802
  Receipt Date: 20070715
  Transmission Date: 20110219
  Serious: No
  Sender: FDA-Public Use
  Company Number: US-PFIZER INC-2007060560

PATIENT
  Age: 80 Year

DRUGS (4)
  1. LYRICA [Suspect]
  2. FOSAMAX [Concomitant]
  3. GLYBURIDE [Concomitant]
  4. TOPROL-XL [Concomitant]

REACTIONS (1)
  - PALPITATIONS [None]
